FAERS Safety Report 9812202 (Version 2)
Quarter: 2014Q1

REPORT INFORMATION
  Report Type: Spontaneous
  Country: FR (occurrence: FR)
  Receive Date: 20140112
  Receipt Date: 20140211
  Transmission Date: 20141002
  Serious: Yes (Other)
  Sender: FDA-Public Use
  Company Number: FR-ROCHE-1332116

PATIENT
  Sex: Male
  Weight: 65 kg

DRUGS (1)
  1. ZELBORAF [Suspect]
     Indication: METASTATIC MALIGNANT MELANOMA
     Route: 048
     Dates: start: 201310

REACTIONS (4)
  - Mania [Not Recovered/Not Resolved]
  - Insomnia [Unknown]
  - Affective disorder [Unknown]
  - Agitation [Unknown]
